FAERS Safety Report 9879956 (Version 1)
Quarter: 2014Q1

REPORT INFORMATION
  Report Type: Spontaneous
  Country: US (occurrence: US)
  Receive Date: 20140207
  Receipt Date: 20140207
  Transmission Date: 20141002
  Serious: No
  Sender: FDA-Public Use
  Company Number: US-009507513-1402USA002221

PATIENT
  Age: 22 Year
  Sex: Female
  Weight: 100.68 kg

DRUGS (3)
  1. IMPLANON [Suspect]
     Indication: CONTRACEPTION
     Dosage: 1 ROD FOR 3 YEARS
     Route: 059
     Dates: start: 20121219
  2. BUSPAR [Concomitant]
     Dosage: 10 MG, BID
  3. AMOXICILLIN [Concomitant]
     Dosage: 850 MG, BID

REACTIONS (4)
  - Panic attack [Unknown]
  - Dyspnoea [Unknown]
  - Weight increased [Unknown]
  - Dizziness [Unknown]
